FAERS Safety Report 15560418 (Version 2)
Quarter: 2019Q1

REPORT INFORMATION
  Report Type: Spontaneous
  Country: US (occurrence: US)
  Receive Date: 20181029
  Receipt Date: 20190211
  Transmission Date: 20190417
  Serious: Yes (Death, Hospitalization, Other)
  Sender: FDA-Public Use
  Company Number: US-009507513-1810USA011206

PATIENT
  Age: 61 Year
  Sex: Male

DRUGS (7)
  1. KEYTRUDA [Suspect]
     Active Substance: PEMBROLIZUMAB
     Indication: GALLBLADDER CANCER METASTATIC
     Dosage: 200 MILLIGRAM, EVERY 21 DAYS
     Dates: start: 20181019, end: 20181023
  2. DUONEB [Concomitant]
     Active Substance: ALBUTEROL SULFATE\IPRATROPIUM BROMIDE
  3. LASIX [Concomitant]
     Active Substance: FUROSEMIDE
     Route: 042
  4. ATIVAN [Concomitant]
     Active Substance: LORAZEPAM
  5. OXYCODONE [Concomitant]
     Active Substance: OXYCODONE
  6. UNASYN (SULTAMICILLIN) [Concomitant]
  7. HEPARIN [Concomitant]
     Active Substance: HEPARIN SODIUM

REACTIONS (3)
  - Organ failure [Fatal]
  - Product use in unapproved indication [Unknown]
  - Malignant neoplasm progression [Unknown]

NARRATIVE: CASE EVENT DATE: 201810
